FAERS Safety Report 7417318-0 (Version None)
Quarter: 2011Q2

REPORT INFORMATION
  Report Type: 
  Country: None (occurrence: None)
  Receive Date: 20110415
  Receipt Date: 20110406
  Transmission Date: 20111010
  Serious: Yes (Death, Hospitalization, Other)
  Sender: FDA-Public Use
  Company Number: JP-BAYER-2011-017933

PATIENT
  Age: 75 Year
  Sex: Male
  Weight: 64 kg

DRUGS (8)
  1. NEXAVAR [Suspect]
     Indication: HEPATIC NEOPLASM MALIGNANT
     Dosage: DAILY DOSE 800 MG
     Route: 048
     Dates: start: 20100205, end: 20100308
  2. BLOPRESS [Concomitant]
     Indication: HYPERTENSION
     Dosage: DAILY DOSE 8 MG
     Route: 048
     Dates: start: 20100214, end: 20110318
  3. NEXAVAR [Suspect]
     Dosage: DAILY DOSE 400 MG
     Route: 048
     Dates: start: 20100315, end: 20110222
  4. ASPIRIN [Concomitant]
     Dosage: DAILY DOSE 100 MG
     Route: 048
     Dates: start: 20080630, end: 20110222
  5. NEXAVAR [Suspect]
     Dosage: UNK
     Dates: end: 20110308
  6. NORVASC [Concomitant]
     Indication: HYPERTENSION
     Dosage: DAILY DOSE 5 MG
     Route: 048
     Dates: end: 20110318
  7. BEPRICOR [Concomitant]
     Indication: ARRHYTHMIA
     Dosage: DAILY DOSE 100 MG
     Route: 048
     Dates: start: 20080630, end: 20110222
  8. ASPENON [Concomitant]
     Dosage: DAILY DOSE 60 MG
     Route: 048
     Dates: start: 20080630, end: 20110223

REACTIONS (4)
  - MALAISE [None]
  - CEREBRAL INFARCTION [None]
  - DECREASED APPETITE [None]
  - HEPATIC NEOPLASM MALIGNANT [None]
